FAERS Safety Report 8829449 (Version 2)
Quarter: 2015Q2

REPORT INFORMATION
  Report Type: Report from Study
  Country: US (occurrence: US)
  Receive Date: 20121008
  Receipt Date: 20150416
  Transmission Date: 20150821
  Serious: Yes (Death, Other)
  Sender: FDA-Public Use
  Company Number: US-ROCHE-1131015

PATIENT
  Age: 72 Year
  Sex: Male

DRUGS (29)
  1. HUMULIN NOS [Concomitant]
     Active Substance: INSULIN HUMAN
     Dosage: 06 UNITS EVERY MORNING
     Route: 058
  2. ATROVENT [Concomitant]
     Active Substance: IPRATROPIUM BROMIDE
     Dosage: 2 PUFFS
     Route: 065
  3. SEREVENT DISKUS [Concomitant]
     Active Substance: SALMETEROL XINAFOATE
     Dosage: 3 PUFFS
     Route: 065
  4. NEUPOGEN [Concomitant]
     Active Substance: FILGRASTIM
     Route: 058
  5. VINCRISTINE [Concomitant]
     Active Substance: VINCRISTINE
  6. TYLENOL [Concomitant]
     Active Substance: ACETAMINOPHEN
     Route: 065
  7. HEPARIN [Concomitant]
     Active Substance: HEPARIN SODIUM
  8. BABY ASPIRIN [Concomitant]
     Active Substance: ASPIRIN
     Route: 048
  9. BENADRYL [Concomitant]
     Active Substance: DIPHENHYDRAMINE HYDROCHLORIDE
     Route: 048
  10. ZOFRAN [Concomitant]
     Active Substance: ONDANSETRON HYDROCHLORIDE
     Route: 065
  11. RITUXAN [Suspect]
     Active Substance: RITUXIMAB
     Indication: MALIGNANT LYMPHOID NEOPLASM
  12. SYNTHROID [Concomitant]
     Active Substance: LEVOTHYROXINE SODIUM
     Route: 065
  13. CYTOXAN [Concomitant]
     Active Substance: CYCLOPHOSPHAMIDE
     Route: 065
  14. DILANTIN [Concomitant]
     Active Substance: PHENYTOIN
     Route: 048
  15. DILANTIN [Concomitant]
     Active Substance: PHENYTOIN
     Route: 048
  16. DIGOXIN. [Concomitant]
     Active Substance: DIGOXIN
     Route: 065
  17. RITUXAN [Suspect]
     Active Substance: RITUXIMAB
     Indication: LYMPHOMA
     Route: 042
     Dates: start: 20020107
  18. NOVANTRONE [Concomitant]
     Active Substance: MITOXANTRONE HYDROCHLORIDE
     Route: 065
  19. HYDROCORTISONE. [Concomitant]
     Active Substance: HYDROCORTISONE
     Route: 042
  20. ZOCOR [Concomitant]
     Active Substance: SIMVASTATIN
     Route: 065
  21. HUMULIN NOS [Concomitant]
     Active Substance: INSULIN HUMAN
     Dosage: 15 UNITS EVERY MORNING
     Route: 058
  22. AUGMENTIN [Concomitant]
     Active Substance: AMOXICILLIN\CLAVULANATE POTASSIUM
  23. LEVAQUIN [Concomitant]
     Active Substance: LEVOFLOXACIN
  24. DECADRON [Concomitant]
     Active Substance: DEXAMETHASONE
     Route: 065
  25. TEGRETOL [Concomitant]
     Active Substance: CARBAMAZEPINE
     Route: 048
  26. ALLOPURINOL. [Concomitant]
     Active Substance: ALLOPURINOL
     Route: 065
  27. DARVOCET [Concomitant]
     Active Substance: ACETAMINOPHEN\PROPOXYPHENE HYDROCHLORIDE
  28. MITOXANTRONE [Concomitant]
     Active Substance: MITOXANTRONE HYDROCHLORIDE
  29. PREDNISONE. [Concomitant]
     Active Substance: PREDNISONE
     Route: 048

REACTIONS (13)
  - Fatigue [Unknown]
  - Disease progression [Unknown]
  - Dizziness [Unknown]
  - Decreased appetite [Unknown]
  - Neutropenia [Unknown]
  - Haemoglobin decreased [Unknown]
  - Infection [Unknown]
  - Chills [Unknown]
  - Pancytopenia [Unknown]
  - Death [Fatal]
  - Pyrexia [Unknown]
  - Night sweats [Unknown]
  - Stomatitis [Unknown]

NARRATIVE: CASE EVENT DATE: 200211
